FAERS Safety Report 17129392 (Version 2)
Quarter: 2020Q1

REPORT INFORMATION
  Report Type: Spontaneous
  Country: US (occurrence: US)
  Receive Date: 20191209
  Receipt Date: 20200115
  Transmission Date: 20200409
  Serious: Yes (Death)
  Sender: FDA-Public Use
  Company Number: US-PFIZER INC-2019525477

PATIENT
  Age: 73 Year
  Sex: Male

DRUGS (1)
  1. SUTENT [Suspect]
     Active Substance: SUNITINIB MALATE
     Indication: RENAL CANCER
     Dosage: 50 MG, CYCLIC (1 CAPSULE DAILY ON DAYS 1-14, EVERY 21 DAYS)
     Route: 048
     Dates: start: 201911

REACTIONS (3)
  - Fatigue [Unknown]
  - Death [Fatal]
  - Dizziness postural [Unknown]

NARRATIVE: CASE EVENT DATE: 20191225
